FAERS Safety Report 18177692 (Version 1)
Quarter: 2020Q3

REPORT INFORMATION
  Report Type: Spontaneous
  Country: DE (occurrence: DE)
  Receive Date: 20200820
  Receipt Date: 20200820
  Transmission Date: 20201103
  Serious: Yes (Other)
  Sender: FDA-Public Use
  Company Number: NVSC2020DE227407

PATIENT
  Age: 76 Year
  Sex: Female

DRUGS (1)
  1. ATECTURA BREEZHALER [Suspect]
     Active Substance: INDACATEROL ACETATE\MOMETASONE FUROATE
     Indication: CHRONIC OBSTRUCTIVE PULMONARY DISEASE
     Dosage: 2 DF, QD
     Route: 065

REACTIONS (3)
  - Rheumatic disorder [Unknown]
  - Off label use [Unknown]
  - Arthropathy [Unknown]
